FAERS Safety Report 7959841-6 (Version None)
Quarter: 2011Q4

REPORT INFORMATION
  Report Type: 
  Country: None (occurrence: None)
  Receive Date: 20111206
  Receipt Date: 20111130
  Transmission Date: 20120403
  Serious: Yes (Death, Other)
  Sender: FDA-Public Use
  Company Number: JP-PFIZER INC-2011281117

PATIENT
  Age: 73 Year
  Sex: Female

DRUGS (1)
  1. ZYVOX [Suspect]
     Indication: STAPHYLOCOCCAL INFECTION
     Dosage: 1200 MG/DAY
     Route: 042
     Dates: start: 20111027, end: 20111109

REACTIONS (3)
  - WHITE BLOOD CELL COUNT DECREASED [None]
  - SEPSIS [None]
  - PLATELET COUNT DECREASED [None]
